FAERS Safety Report 22118451 (Version 4)
Quarter: 2023Q2

REPORT INFORMATION
  Report Type: Report from Study
  Country: CR (occurrence: None)
  Receive Date: 20230321
  Receipt Date: 20230414
  Transmission Date: 20230722
  Serious: Yes (Death, Hospitalization)
  Sender: FDA-Public Use
  Company Number: CR-ROCHE-3311670

PATIENT
  Age: 76 Year
  Sex: Male
  Weight: 70 kg

DRUGS (4)
  1. ATEZOLIZUMAB [Suspect]
     Active Substance: ATEZOLIZUMAB
     Indication: Non-small cell lung cancer metastatic
     Dosage: ON 11/JAN/2023 3:15 PM, HE RECEIVED THE MOST RECENT DOSE OF ATEZOLIZUMAB (20 ML) PRIOR TO AE/SAE
     Route: 041
     Dates: start: 20221130
  2. ATEZOLIZUMAB [Suspect]
     Active Substance: ATEZOLIZUMAB
     Indication: Non-small cell lung cancer metastatic
     Dosage: ON 22/FEB/2023 3:00 PM, HE RECEIVED THE MOST RECENT DOSE OF ATEZOLIZUMAB (125 MG) PRIOR TO AE/SAE
     Route: 058
     Dates: start: 20230201
  3. IRBESARTAN [Concomitant]
     Active Substance: IRBESARTAN
     Indication: Hypertension
     Route: 048
  4. METFORMIN [Concomitant]
     Active Substance: METFORMIN HYDROCHLORIDE
     Indication: Diabetes mellitus
     Route: 048

REACTIONS (3)
  - Autoimmune myocarditis [Fatal]
  - Septic shock [Fatal]
  - Cardiogenic shock [Fatal]

NARRATIVE: CASE EVENT DATE: 20230315
